FAERS Safety Report 6905191-6 (Version None)
Quarter: 2010Q3

REPORT INFORMATION
  Report Type: 
  Country: None (occurrence: None)
  Receive Date: 20100804
  Receipt Date: 20100728
  Transmission Date: 20110219
  Serious: Yes (Hospitalization)
  Sender: FDA-Public Use
  Company Number: FR-B.I. PHARMACEUTICALS,INC./RIDGEFIELD-2010-FF-00611FF

PATIENT
  Sex: Male

DRUGS (15)
  1. VIRAMUNE [Suspect]
     Indication: HIV INFECTION
     Dosage: 400 MG
     Route: 048
     Dates: start: 20011101
  2. TRUVADA [Suspect]
     Indication: HIV INFECTION
     Route: 048
     Dates: start: 20090701, end: 20100427
  3. PANTOPRAZOLE SODIUM [Suspect]
     Indication: PROPHYLAXIS
     Dosage: 20 MG
     Route: 048
     Dates: start: 20070101
  4. HYZAAR [Suspect]
     Indication: HYPERTENSION
     Route: 048
     Dates: start: 20070701
  5. COZAAR [Suspect]
     Indication: HYPERTENSION
     Route: 048
     Dates: start: 20030731, end: 20051221
  6. FORTZAAR [Suspect]
     Indication: HYPERTENSION
     Route: 048
     Dates: start: 20051222, end: 20070701
  7. KARDEGIC [Concomitant]
  8. ESCITALOPRAM OXALATE [Concomitant]
  9. ATHYMIL [Concomitant]
  10. ALPRAZOLAM [Concomitant]
  11. ZOLPIDEM [Concomitant]
  12. TERCIAN [Concomitant]
  13. CEBUTID [Concomitant]
  14. DOLIPRANE [Concomitant]
  15. TOPALGIC [Concomitant]

REACTIONS (6)
  - MYALGIA [None]
  - NERVE COMPRESSION [None]
  - OEDEMA PERIPHERAL [None]
  - OSTEOARTHRITIS [None]
  - SPINAL OSTEOARTHRITIS [None]
  - ULNAR NERVE PALSY [None]
